FAERS Safety Report 6546465-0 (Version None)
Quarter: 2010Q1

REPORT INFORMATION
  Report Type: 
  Country: None (occurrence: None)
  Receive Date: 20100122
  Receipt Date: 20100111
  Transmission Date: 20100710
  Serious: Yes (Other)
  Sender: FDA-Public Use
  Company Number: PHHY2010US01519

PATIENT
  Sex: Female

DRUGS (2)
  1. CLOZARIL [Suspect]
     Indication: PSYCHOTIC DISORDER
     Dosage: UNK
     Route: 048
     Dates: start: 20061101
  2. CLOZARIL [Suspect]
     Dosage: 100 MG, TWICE A DAY, 300 MG AT BED TIME
     Route: 048

REACTIONS (2)
  - CARDIAC FAILURE [None]
  - ORGAN TRANSPLANT [None]
